FAERS Safety Report 5469483-2 (Version None)
Quarter: 2007Q3

REPORT INFORMATION
  Report Type: 
  Country: None (occurrence: None)
  Receive Date: 20070927
  Receipt Date: 20070925
  Transmission Date: 20080115
  Serious: Yes (Other)
  Sender: FDA-Public Use
  Company Number: A0630292B

PATIENT
  Age: 70 Year
  Sex: Male
  Weight: 85.5 kg

DRUGS (5)
  1. DUTASTERIDE [Suspect]
     Indication: PROSTATE CANCER
     Dosage: .5MG PER DAY
     Route: 048
     Dates: start: 20051117
  2. KETOCONAZOLE [Suspect]
     Indication: PROSTATE CANCER
     Dosage: 400MG THREE TIMES PER DAY
     Route: 048
     Dates: start: 20051117
  3. HYDROCORTISONE [Suspect]
     Indication: PROSTATE CANCER
     Route: 048
     Dates: start: 20051117
  4. EXTRA STRENGTH ASA [Concomitant]
     Indication: ANTICOAGULANT THERAPY
     Dosage: 81MG ALTERNATE DAYS
     Dates: start: 20040805
  5. LISINOPRIL [Concomitant]
     Indication: HYPERTENSION
     Dosage: 15MG PER DAY
     Route: 048
     Dates: start: 20061116

REACTIONS (2)
  - DEEP VEIN THROMBOSIS [None]
  - PULMONARY EMBOLISM [None]
